FAERS Safety Report 13668042 (Version 1)
Quarter: 2017Q2

REPORT INFORMATION
  Report Type: Spontaneous
  Country: US (occurrence: US)
  Receive Date: 20170619
  Receipt Date: 20170619
  Transmission Date: 20170830
  Serious: Yes (Life-Threatening)
  Sender: FDA-Public Use
  Company Number: None

PATIENT
  Age: 75 Year
  Sex: Female
  Weight: 80.55 kg

DRUGS (6)
  1. VIBERZI [Suspect]
     Active Substance: ELUXADOLINE
     Indication: IRRITABLE BOWEL SYNDROME
     Dosage: ?          QUANTITY:1 TABLET(S);?
     Route: 048
     Dates: start: 20170508, end: 20170520
  2. RESTASIS [Concomitant]
     Active Substance: CYCLOSPORINE
  3. TRAZODONE [Concomitant]
     Active Substance: TRAZODONE HYDROCHLORIDE
  4. CITALOPRAM [Concomitant]
     Active Substance: CITALOPRAM HYDROBROMIDE
  5. DYMISTA [Concomitant]
     Active Substance: AZELASTINE HYDROCHLORIDE\FLUTICASONE PROPIONATE
  6. TYLENOL [Concomitant]
     Active Substance: ACETAMINOPHEN

REACTIONS (18)
  - Hunger [None]
  - Therapy change [None]
  - Dysphagia [None]
  - Food poisoning [None]
  - Abdominal distension [None]
  - Bladder disorder [None]
  - Syncope [None]
  - Gastrointestinal pain [None]
  - Middle insomnia [None]
  - Diarrhoea [None]
  - Retching [None]
  - Fatigue [None]
  - Pallor [None]
  - Musculoskeletal chest pain [None]
  - Abnormal faeces [None]
  - Dyspepsia [None]
  - Nausea [None]
  - Pyrexia [None]

NARRATIVE: CASE EVENT DATE: 20170516
